FAERS Safety Report 24734730 (Version 1)
Quarter: 2024Q4

REPORT INFORMATION
  Report Type: Spontaneous
  Country: JP (occurrence: JP)
  Receive Date: 20241214
  Receipt Date: 20241214
  Transmission Date: 20250114
  Serious: Yes (Life-Threatening, Hospitalization, Other)
  Sender: BRISTOL-MYERS SQUIBB COMPANY
  Company Number: JP-BRISTOL-MYERS SQUIBB COMPANY-2024-191798

PATIENT
  Age: 72 Year
  Sex: Female
  Weight: 35.6 kg

DRUGS (14)
  1. YERVOY [Suspect]
     Active Substance: IPILIMUMAB
     Indication: Colon cancer
     Dosage: 20MG/4ML
     Route: 041
     Dates: start: 20240603, end: 20240624
  2. OPDIVO [Suspect]
     Active Substance: NIVOLUMAB
     Indication: Colon cancer
     Dosage: 240MG/24ML
     Route: 041
     Dates: start: 20240603, end: 20240624
  3. OPDIVO [Suspect]
     Active Substance: NIVOLUMAB
     Dosage: 240MG/24ML
     Route: 041
     Dates: start: 20240816, end: 20240816
  4. OPDIVO [Suspect]
     Active Substance: NIVOLUMAB
     Dosage: 240MG/24ML
     Route: 041
     Dates: start: 20240830, end: 20240830
  5. OPDIVO [Suspect]
     Active Substance: NIVOLUMAB
     Dosage: 240MG/24ML
     Route: 041
     Dates: start: 20240913, end: 20240913
  6. OPDIVO [Suspect]
     Active Substance: NIVOLUMAB
     Dosage: 240MG/24ML
     Route: 041
     Dates: start: 20240927, end: 20240927
  7. OPDIVO [Suspect]
     Active Substance: NIVOLUMAB
     Dosage: 240MG/24ML
     Route: 041
     Dates: start: 20241011, end: 20241011
  8. FUROSEMIDE [Concomitant]
     Active Substance: FUROSEMIDE
     Indication: Product used for unknown indication
  9. FEBUXOSTAT [Concomitant]
     Active Substance: FEBUXOSTAT
     Indication: Product used for unknown indication
  10. SPIRONOLACTONE [Concomitant]
     Active Substance: SPIRONOLACTONE
     Indication: Product used for unknown indication
  11. ELOBIXIBAT [Concomitant]
     Active Substance: ELOBIXIBAT
     Indication: Product used for unknown indication
  12. SODIUM FERROUS CITRATE [Concomitant]
     Active Substance: SODIUM FERROUS CITRATE
     Indication: Product used for unknown indication
  13. RABEPRAZOLE SODIUM [Concomitant]
     Active Substance: RABEPRAZOLE SODIUM
     Indication: Product used for unknown indication
  14. HEPARINOID [Concomitant]
     Indication: Product used for unknown indication

REACTIONS (5)
  - Immune-mediated myocarditis [Recovered/Resolved]
  - Cardiac failure [Unknown]
  - Cardiac valve disease [Unknown]
  - Malignant neoplasm progression [Unknown]
  - Pleural effusion [Recovered/Resolved]

NARRATIVE: CASE EVENT DATE: 20240701
